FAERS Safety Report 7837253-3 (Version None)
Quarter: 2011Q4

REPORT INFORMATION
  Report Type: 
  Country: None (occurrence: None)
  Receive Date: 20111024
  Receipt Date: 20110322
  Transmission Date: 20120403
  Serious: No
  Sender: FDA-Public Use
  Company Number: US-ABBOTT-11P-163-0713456-00

PATIENT
  Sex: Female

DRUGS (1)
  1. LUPRON DEPOT [Suspect]
     Indication: REPRODUCTIVE TRACT DISORDER
     Dates: start: 20101201

REACTIONS (2)
  - MENTAL DISORDER [None]
  - ILL-DEFINED DISORDER [None]
